FAERS Safety Report 6858061-6 (Version None)
Quarter: 2010Q3

REPORT INFORMATION
  Report Type: 
  Country: None (occurrence: None)
  Receive Date: 20100719
  Receipt Date: 20080401
  Transmission Date: 20110219
  Serious: No
  Sender: FDA-Public Use
  Company Number: US-PFIZER INC-2008010409

PATIENT
  Sex: Female

DRUGS (3)
  1. CHANTIX [Suspect]
     Dates: start: 20071218, end: 20080115
  2. IBANDRONATE SODIUM [Concomitant]
  3. LOVASTATIN [Concomitant]

REACTIONS (1)
  - BLOOD GLUCOSE INCREASED [None]
